FAERS Safety Report 11441834 (Version 2)
Quarter: 2021Q3

REPORT INFORMATION
  Report Type: Spontaneous
  Country: EG (occurrence: EG)
  Receive Date: 20150901
  Receipt Date: 20210730
  Transmission Date: 20211014
  Serious: Yes (Life-Threatening, Hospitalization, Other)
  Sender: FDA-Public Use
  Company Number: PHHY2015EG104996

PATIENT
  Age: 6 Year
  Sex: Male
  Weight: 25 kg

DRUGS (2)
  1. CEFTRIAXONE,LIDOCAINE [Suspect]
     Active Substance: CEFTRIAXONE
     Indication: UPPER RESPIRATORY TRACT INFECTION
  2. CEFTRIAXONE,LIDOCAINE [Suspect]
     Active Substance: CEFTRIAXONE
     Indication: OROPHARYNGEAL PAIN
     Dosage: 500 MG, QD
     Route: 030
     Dates: start: 20150810

REACTIONS (10)
  - Abdominal pain upper [Recovered/Resolved]
  - Syncope [Unknown]
  - Tremor [Unknown]
  - Dyspnoea [Recovered/Resolved]
  - Rash [Unknown]
  - Anaphylactic shock [Recovered/Resolved]
  - Vomiting [Recovered/Resolved]
  - Cyanosis [Recovered/Resolved]
  - Hypersensitivity [Recovered/Resolved]
  - Swelling face [Unknown]

NARRATIVE: CASE EVENT DATE: 20150810
